FAERS Safety Report 12236951 (Version 1)
Quarter: 2016Q2

REPORT INFORMATION
  Report Type: Spontaneous
  Country: VE (occurrence: VE)
  Receive Date: 20160405
  Receipt Date: 20160405
  Transmission Date: 20160815
  Serious: Yes (Death, Hospitalization, Other)
  Sender: FDA-Public Use
  Company Number: VE-ABBVIE-16K-178-1570520-00

PATIENT
  Age: 63 Year
  Sex: Female

DRUGS (1)
  1. HUMIRA [Suspect]
     Active Substance: ADALIMUMAB
     Indication: RHEUMATOID ARTHRITIS
     Route: 058
     Dates: start: 2009

REACTIONS (6)
  - Erythema multiforme [Unknown]
  - Dyspnoea [Unknown]
  - Malaise [Unknown]
  - Septic vasculitis [Fatal]
  - Toxic epidermal necrolysis [Unknown]
  - Opportunistic infection [Fatal]
